FAERS Safety Report 12550256 (Version 1)
Quarter: 2016Q3

REPORT INFORMATION
  Report Type: Spontaneous
  Country: US (occurrence: US)
  Receive Date: 20160712
  Receipt Date: 20160712
  Transmission Date: 20161109
  Serious: Yes (Death)
  Sender: FDA-Public Use
  Company Number: US-ENDO PHARMACEUTICALS INC.-2016-004271

PATIENT
  Age: 13 Year
  Sex: Male
  Weight: 72.28 kg

DRUGS (1)
  1. SUPPRELIN LA [Suspect]
     Active Substance: HISTRELIN ACETATE
     Indication: PRODUCT USED FOR UNKNOWN INDICATION
     Route: 058
     Dates: start: 2015

REACTIONS (1)
  - Death [Fatal]

NARRATIVE: CASE EVENT DATE: 20160523
